FAERS Safety Report 23954707 (Version 5)
Quarter: 2025Q1

REPORT INFORMATION
  Report Type: Spontaneous
  Country: US (occurrence: US)
  Receive Date: 20240610
  Receipt Date: 20250307
  Transmission Date: 20250408
  Serious: Yes (Hospitalization, Disabling, Other)
  Sender: AMGEN
  Company Number: US-AMGEN-USASP2024110002

PATIENT
  Age: 68 Year
  Sex: Female

DRUGS (32)
  1. TEPEZZA [Suspect]
     Active Substance: TEPROTUMUMAB-TRBW
     Indication: Graves^ disease
     Route: 042
     Dates: start: 20221122
  2. TEPEZZA [Suspect]
     Active Substance: TEPROTUMUMAB-TRBW
     Indication: Endocrine ophthalmopathy
     Dosage: 910 MILLIGRAM, QD, (FIRST DOSE)
     Route: 042
     Dates: start: 20230411
  3. TEPEZZA [Suspect]
     Active Substance: TEPROTUMUMAB-TRBW
     Dosage: 1820 MILLIGRAM, QD, (SECOND DOSE)
     Route: 042
     Dates: start: 20230427
  4. TEPEZZA [Suspect]
     Active Substance: TEPROTUMUMAB-TRBW
     Dosage: 1820 MILLIGRAM, Q3WK
     Route: 042
     Dates: start: 20230519
  5. TEPEZZA [Suspect]
     Active Substance: TEPROTUMUMAB-TRBW
     Dosage: 1820 MILLIGRAM, Q3WK
     Route: 042
     Dates: start: 20230613
  6. TEPEZZA [Suspect]
     Active Substance: TEPROTUMUMAB-TRBW
     Dosage: 1820 MILLIGRAM, Q3WK
     Route: 042
     Dates: start: 20230726
  7. TEPEZZA [Suspect]
     Active Substance: TEPROTUMUMAB-TRBW
     Dosage: 1820 MILLIGRAM, Q3WK
     Route: 042
     Dates: start: 20230825
  8. TEPEZZA [Suspect]
     Active Substance: TEPROTUMUMAB-TRBW
     Dosage: 1820 MILLIGRAM, Q3WK
     Route: 042
     Dates: start: 20230915
  9. DIPHENHYDRAMINE [Concomitant]
     Active Substance: DIPHENHYDRAMINE
     Route: 042
     Dates: start: 20230411
  10. EPINEPHRINE [Concomitant]
     Active Substance: EPINEPHRINE
     Route: 030
     Dates: start: 20230411
  11. SODIUM CHLORIDE [Concomitant]
     Active Substance: SODIUM CHLORIDE
     Route: 065
  12. SODIUM CHLORIDE [Concomitant]
     Active Substance: SODIUM CHLORIDE
     Route: 042
     Dates: start: 20230408
  13. SODIUM CHLORIDE [Concomitant]
     Active Substance: SODIUM CHLORIDE
     Route: 042
     Dates: start: 20230427
  14. SODIUM CHLORIDE [Concomitant]
     Active Substance: SODIUM CHLORIDE
     Route: 042
     Dates: start: 20230519
  15. SODIUM CHLORIDE [Concomitant]
     Active Substance: SODIUM CHLORIDE
     Route: 042
     Dates: start: 20230610
  16. SODIUM CHLORIDE [Concomitant]
     Active Substance: SODIUM CHLORIDE
  17. SODIUM CHLORIDE [Concomitant]
     Active Substance: SODIUM CHLORIDE
  18. SODIUM CHLORIDE [Concomitant]
     Active Substance: SODIUM CHLORIDE
     Route: 042
     Dates: start: 20230623
  19. IMITREX [Concomitant]
     Active Substance: SUMATRIPTAN SUCCINATE
     Route: 065
  20. SYNTHROID [Concomitant]
     Active Substance: LEVOTHYROXINE SODIUM
     Route: 065
  21. LEVOTHYROXINE SODIUM [Concomitant]
     Active Substance: LEVOTHYROXINE SODIUM
     Route: 065
  22. STERILE WATER [Concomitant]
     Active Substance: WATER
     Route: 065
  23. COREG [Concomitant]
     Active Substance: CARVEDILOL
     Dosage: 12.5 MILLIGRAM, BID
     Route: 065
  24. OLOPATADINE [Concomitant]
     Active Substance: OLOPATADINE
     Route: 065
  25. PROMETHAZINE [Concomitant]
     Active Substance: PROMETHAZINE HYDROCHLORIDE
     Route: 065
  26. SUMATRIPTAN [Concomitant]
     Active Substance: SUMATRIPTAN
     Route: 065
  27. MAXITROL [Concomitant]
     Active Substance: DEXAMETHASONE\NEOMYCIN SULFATE\POLYMYXIN B SULFATE
     Route: 047
  28. ERYTHROMYCIN [Concomitant]
     Active Substance: ERYTHROMYCIN
     Route: 065
  29. LATANOPROST [Concomitant]
     Active Substance: LATANOPROST
     Dosage: UNK UNK, QD
     Route: 047
  30. OLOPATADINE HYDROCHLORIDE [Concomitant]
     Active Substance: OLOPATADINE HYDROCHLORIDE
     Dosage: UNK UNK, QD
     Route: 047
  31. SOLU-MEDROL [Concomitant]
     Active Substance: METHYLPREDNISOLONE SODIUM SUCCINATE
     Route: 040
  32. Artificial tears [Concomitant]
     Route: 065

REACTIONS (54)
  - Endocrine ophthalmopathy [Unknown]
  - Graves^ disease [Unknown]
  - Deafness neurosensory [Not Recovered/Not Resolved]
  - Rheumatoid arthritis [Unknown]
  - Liver disorder [Unknown]
  - Emotional distress [Unknown]
  - Anxiety [Unknown]
  - Pain [Unknown]
  - Product use complaint [Unknown]
  - Gait disturbance [Unknown]
  - Constipation [Unknown]
  - Pruritus [Unknown]
  - Peripheral swelling [Unknown]
  - Gastrointestinal disorder [Unknown]
  - Skin warm [Unknown]
  - Pyrexia [Unknown]
  - Nocturia [Unknown]
  - Back disorder [Unknown]
  - Dyspnoea exertional [Unknown]
  - Mobility decreased [Unknown]
  - Increased tendency to bruise [Unknown]
  - Hypoaesthesia [Unknown]
  - Paraesthesia [Unknown]
  - Myalgia [Unknown]
  - Abdominal pain upper [Unknown]
  - Vomiting [Unknown]
  - Faeces discoloured [Unknown]
  - Depression [Unknown]
  - Lymphadenopathy [Unknown]
  - Blood urea increased [Unknown]
  - Blood creatinine increased [Unknown]
  - Tri-iodothyronine free decreased [Unknown]
  - Red blood cell count decreased [Unknown]
  - Dizziness [Unknown]
  - Haematocrit decreased [Unknown]
  - Neutrophil count decreased [Unknown]
  - Lymphocyte count increased [Unknown]
  - Dyspnoea [Unknown]
  - Insomnia [Unknown]
  - Thirst [Unknown]
  - Migraine [Unknown]
  - Neutrophil count decreased [Unknown]
  - Red cell distribution width increased [Unknown]
  - Eye pruritus [Unknown]
  - Skin lesion [Unknown]
  - Weight decreased [Unknown]
  - Rash [Unknown]
  - Dry skin [Unknown]
  - Asthenia [Unknown]
  - Nausea [Unknown]
  - Fatigue [Unknown]
  - Headache [Unknown]
  - Tinnitus [Not Recovered/Not Resolved]
  - Infusion related reaction [Recovered/Resolved]

NARRATIVE: CASE EVENT DATE: 20230301
